FAERS Safety Report 7611231-1 (Version None)
Quarter: 2011Q3

REPORT INFORMATION
  Report Type: 
  Country: None (occurrence: None)
  Receive Date: 20110707
  Receipt Date: 20110622
  Transmission Date: 20111222
  Serious: Yes (Hospitalization, Other)
  Sender: FDA-Public Use
  Company Number: 2011MA007924

PATIENT
  Age: 25 Year

DRUGS (2)
  1. CLINDAMYCIN PHOSPHATE [Suspect]
     Indication: STREPTOCOCCAL INFECTION
  2. METHYLPREDNISOLONE [Suspect]
     Indication: STREPTOCOCCAL INFECTION

REACTIONS (1)
  - DRUG RASH WITH EOSINOPHILIA AND SYSTEMIC SYMPTOMS [None]
